FAERS Safety Report 9785017 (Version 2)
Quarter: 2014Q1

REPORT INFORMATION
  Report Type: Spontaneous
  Country: US (occurrence: US)
  Receive Date: 20131227
  Receipt Date: 20140113
  Transmission Date: 20141002
  Serious: Yes (Death, Hospitalization)
  Sender: FDA-Public Use
  Company Number: US-BAXTER-2013BAX051904

PATIENT
  Sex: Female

DRUGS (3)
  1. DIANEAL LOW CALCIUM [Suspect]
     Indication: PERITONEAL DIALYSIS
     Route: 033
  2. DIANEAL LOW CALCIUM [Suspect]
     Indication: RENAL FAILURE CHRONIC
  3. CELEBREX [Concomitant]
     Indication: PRODUCT USED FOR UNKNOWN INDICATION
     Dates: start: 20131207, end: 20131214

REACTIONS (8)
  - Myocardial infarction [Fatal]
  - Multi-organ failure [Fatal]
  - Sepsis [Fatal]
  - Cardiac failure [Fatal]
  - Back disorder [Unknown]
  - Abdominal distension [Unknown]
  - Blood pressure abnormal [Unknown]
  - Abdominal pain [Unknown]
